FAERS Safety Report 10010962 (Version 2)
Quarter: 2014Q1

REPORT INFORMATION
  Report Type: Spontaneous
  Country: GB (occurrence: GB)
  Receive Date: 20140314
  Receipt Date: 20140314
  Transmission Date: 20141002
  Serious: Yes (Other)
  Sender: FDA-Public Use
  Company Number: GB-UCBSA-114132

PATIENT
  Age: 79 Year
  Sex: Male

DRUGS (6)
  1. KEPPRA [Suspect]
     Indication: MYOCLONUS
     Dosage: 500MG AT NIGHT AND 250MG IN THE MORNING
     Route: 048
     Dates: start: 20100917
  2. KEPPRA [Suspect]
     Indication: MYOCLONUS
     Dosage: DOSE INCREASED
     Route: 048
     Dates: start: 201311
  3. SODIUM VALPROATE [Concomitant]
     Dosage: UNKNOWN DOSE
     Dates: end: 2012
  4. MEMANTINE [Concomitant]
     Indication: DEMENTIA ALZHEIMER^S TYPE
     Dates: start: 20091102
  5. HALOPERIDOL [Concomitant]
  6. DIAZEPAM [Concomitant]

REACTIONS (23)
  - Convulsion [Unknown]
  - Pancreatitis [Unknown]
  - Myoclonus [Unknown]
  - Fall [Unknown]
  - Head injury [Unknown]
  - Dyspnoea [Unknown]
  - Fatigue [Unknown]
  - Weight increased [Unknown]
  - Tremor [Unknown]
  - Balance disorder [Unknown]
  - Abdominal pain [Unknown]
  - Dyspepsia [Unknown]
  - Rash [Unknown]
  - Globulins increased [Unknown]
  - Hypoalbuminaemia [Unknown]
  - Somnolence [Unknown]
  - Abnormal behaviour [Unknown]
  - Diarrhoea [Unknown]
  - Rosacea [Unknown]
  - Disorientation [Unknown]
  - Drug administration error [Unknown]
  - Drug dose omission [Unknown]
  - Drug effect decreased [Unknown]
